FAERS Safety Report 7488915-1 (Version None)
Quarter: 2011Q2

REPORT INFORMATION
  Report Type: 
  Country: None (occurrence: None)
  Receive Date: 20110518
  Receipt Date: 20110421
  Transmission Date: 20111010
  Serious: Yes (Hospitalization)
  Sender: FDA-Public Use
  Company Number: US-BAYER-201012765NA

PATIENT
  Age: 24 Year
  Sex: Female
  Weight: 95 kg

DRUGS (23)
  1. DROSPIRENONE AND ETHINYL ESTRADIOL [Suspect]
     Dosage: UNK
     Dates: start: 20080701, end: 20090601
  2. TORADOL [Concomitant]
  3. DICYCLOMINE [Concomitant]
     Dosage: UNK
     Dates: start: 20080428
  4. YAZ [Suspect]
     Indication: ORAL CONTRACEPTION
     Dosage: UNK
     Route: 048
     Dates: start: 20090601, end: 20100101
  5. DROSPIRENONE AND ETHINYL ESTRADIOL [Suspect]
     Indication: PRODUCT USED FOR UNKNOWN INDICATION
     Dosage: UNK UNK, UNK
     Route: 048
     Dates: start: 20080701, end: 20090601
  6. ORPHENADRINE CITRATE [Concomitant]
     Dosage: UNK
  7. PROZAC [Concomitant]
     Indication: DEPRESSION
     Dosage: 40 MG, CONT
     Route: 048
     Dates: start: 20060401, end: 20091201
  8. LEVSIN [Concomitant]
     Dosage: UNK
     Dates: start: 20080502
  9. FLAGYL [Concomitant]
     Dosage: UNK
     Dates: start: 20080502
  10. PANTOPRAZOLE [Concomitant]
     Dosage: UNK
     Dates: start: 20080513
  11. BENTYL [Concomitant]
     Dosage: 10 MG, BID
     Route: 048
     Dates: start: 20080429
  12. YASMIN [Suspect]
     Indication: ORAL CONTRACEPTION
     Dosage: UNK
     Route: 048
     Dates: start: 20060501, end: 20080601
  13. PHENERGAN HCL [Concomitant]
     Dosage: UNK
     Dates: start: 20080429
  14. YAZ [Suspect]
     Dosage: UNK
     Dates: start: 20090601, end: 20100101
  15. GI COCKTAIL [Concomitant]
  16. KETOROLAC TROMETHAMINE [Concomitant]
  17. MORPHINE [Concomitant]
     Dosage: UNK
     Dates: start: 20080429
  18. HYDROCODONE BITARTRATE [Concomitant]
     Dosage: UNK
     Dates: start: 20080513
  19. CHOLESTYRAMINE [Concomitant]
     Dosage: UNK
     Dates: start: 20090218
  20. NEXIUM [Concomitant]
     Dosage: UNK
     Dates: start: 20080429
  21. LEVAQUIN [Concomitant]
     Dosage: UNK
     Dates: start: 20080502
  22. LORTAB [Concomitant]
  23. REGLAN [Concomitant]
     Dosage: UNK
     Dates: start: 20090218

REACTIONS (6)
  - NAUSEA [None]
  - VOMITING [None]
  - ABDOMINAL PAIN UPPER [None]
  - SUICIDE ATTEMPT [None]
  - BILIARY DYSKINESIA [None]
  - CHOLECYSTITIS CHRONIC [None]
